FAERS Safety Report 11594205 (Version 1)
Quarter: 2015Q4

REPORT INFORMATION
  Report Type: Other
  Country: GB (occurrence: GB)
  Receive Date: 20151005
  Receipt Date: 20151005
  Transmission Date: 20160304
  Serious: Yes (Death, Other)
  Sender: FDA-Public Use
  Company Number: GB-MYLANLABS-2015M1032588

PATIENT

DRUGS (14)
  1. MST CONTINUS [Concomitant]
     Active Substance: MORPHINE SULFATE
  2. MULTIVITAMIN                       /00097801/ [Concomitant]
     Active Substance: VITAMINS
     Route: 048
  3. ORAMORPH [Concomitant]
     Active Substance: MORPHINE SULFATE
  4. SIMVASTATIN. [Concomitant]
     Active Substance: SIMVASTATIN
     Indication: BLOOD CHOLESTEROL INCREASED
     Route: 048
  5. CISPLATIN. [Suspect]
     Active Substance: CISPLATIN
     Indication: NON-SMALL CELL LUNG CANCER STAGE IIIB
     Dosage: UNK
  6. EPHEDRINE HYDROCHLORIDE [Concomitant]
     Active Substance: EPHEDRINE HYDROCHLORIDE
  7. SALBUTAMOL [Concomitant]
     Active Substance: ALBUTEROL
     Route: 048
  8. ATENOLOL. [Suspect]
     Active Substance: ATENOLOL
     Indication: BLOOD PRESSURE INCREASED
     Dosage: 25 MG, BID
     Route: 048
  9. ZAPONEX [Suspect]
     Active Substance: CLOZAPINE
     Indication: SCHIZOPHRENIA
     Dosage: 150MG MANE AND 200MG NOCTE
     Dates: start: 20070510, end: 20150901
  10. PHOLCODINE [Concomitant]
     Active Substance: PHOLCODINE
  11. NICORETTE [Concomitant]
     Active Substance: NICOTINE
     Route: 048
  12. TIOTROPIUM [Concomitant]
     Active Substance: TIOTROPIUM
     Indication: INHALATION THERAPY
     Route: 048
  13. VALPROATE SODIUM. [Concomitant]
     Active Substance: VALPROATE SODIUM
     Indication: MOOD SWINGS
     Route: 048
  14. VINORELBINE [Suspect]
     Active Substance: VINORELBINE\VINORELBINE TARTRATE
     Indication: NON-SMALL CELL LUNG CANCER STAGE IIIB
     Dosage: UNK

REACTIONS (8)
  - Neutropenia [Recovered/Resolved]
  - Neutrophil count increased [Not Recovered/Not Resolved]
  - White blood cell count increased [Not Recovered/Not Resolved]
  - Neutropenic sepsis [Unknown]
  - White blood cell count decreased [Recovered/Resolved]
  - Non-small cell lung cancer stage IIIB [Fatal]
  - Product use issue [Not Recovered/Not Resolved]
  - Infection [Fatal]

NARRATIVE: CASE EVENT DATE: 20140311
